FAERS Safety Report 24448102 (Version 1)
Quarter: 2024Q4

REPORT INFORMATION
  Report Type: Spontaneous
  Country: GB (occurrence: GB)
  Receive Date: 20241016
  Receipt Date: 20241016
  Transmission Date: 20250114
  Serious: Yes (Other)
  Sender: TEVA
  Company Number: None

PATIENT
  Age: 69 Year

DRUGS (26)
  1. CLARITHROMYCIN [Suspect]
     Active Substance: CLARITHROMYCIN
     Dosage: 1000 MG DAILY
     Route: 065
     Dates: start: 20231019
  2. QUININE [Concomitant]
     Active Substance: QUININE
     Dosage: AT NIGHT, 300 MG DAILY
  3. BUDESONIDE [Concomitant]
     Active Substance: BUDESONIDE
     Dosage: 2 DOSAGE FORMS DAILY
     Route: 045
  4. OMEPRAZOLE [Concomitant]
     Active Substance: OMEPRAZOLE
     Route: 048
  5. AMOXICILLIN [Concomitant]
     Active Substance: AMOXICILLIN
     Dates: start: 20231019
  6. ACETAMINOPHEN [Concomitant]
     Active Substance: ACETAMINOPHEN
     Dosage: TWO TO BE TAKEN EVERY 4 - 6 HOURS UP TO FOUR TIMES A DAY
  7. NEBIVOLOL [Concomitant]
     Active Substance: NEBIVOLOL
     Dosage: 1 MANE AS DIRECTED BY HOSPITAL, 2.5 MG DAILY
  8. Hux D 3 [Concomitant]
     Dosage: TAKES AT END OF THE MONTH
  9. FENTANYL [Concomitant]
     Active Substance: FENTANYL
     Dosage: 37.5 MICROGRAM / HOUR TRANSDERMAL PATCHES APPLY ONE PATCH EVERY 72 HOURS AS?DIRECTED. REMOVE OLD ...
     Route: 062
  10. ATORVASTATIN [Concomitant]
     Active Substance: ATORVASTATIN
     Dosage: AT NIGHT, 20 MG DAILY
  11. ZOLPIDEM [Concomitant]
     Active Substance: ZOLPIDEM TARTRATE
     Dosage: AT NIGHT, 10 MG DAILY
  12. ALBUTEROL [Concomitant]
     Active Substance: ALBUTEROL
     Dosage: 100 MICROGRAMS / DOSE INHALER CFC FREE 2 PUFFS AS REQIRE
     Route: 055
  13. ALBUTEROL [Concomitant]
     Active Substance: ALBUTEROL
     Dosage: TIME INTERVAL: 4 AS NECESSARY: 2.5 MG / 2.5 M
     Route: 055
  14. HYPROMELLOSES [Concomitant]
     Active Substance: HYPROMELLOSES
     Dosage: 0.3%
     Route: 047
  15. DAPAGLIFLOZIN [Concomitant]
     Active Substance: DAPAGLIFLOZIN
     Dosage: 10 MG DAILY
  16. SEMAGLUTIDE [Concomitant]
     Active Substance: SEMAGLUTIDE
     Dosage: 0.25 MG / 0.19 ML SOLUTION FOR INJECTION 1.5 ML PRE - FILLED DISPOSABLE?DEVICE USE ONCE WEEKLY AS...
  17. FUROSEMIDE [Concomitant]
     Active Substance: FUROSEMIDE
     Dosage: EACH MORNING AS DIRECTED BY HOSPITAL, 20 MG DAILY
  18. VENLAFAXINE HYDROCHLORIDE [Concomitant]
     Active Substance: VENLAFAXINE HYDROCHLORIDE
     Dosage: 225 MG DAILY
  19. GABAPENTIN [Concomitant]
     Active Substance: GABAPENTIN
     Dosage: TAKE TWO MORNING, ONE AT LUNCHTIME AND TWO AT NIGHT,5 DOSAGE FORMS DAILY
  20. PREDNISOLONE [Concomitant]
     Active Substance: PREDNISOLONE
     Dosage: AS PER DISCHARGE - NOT BP-DOUBLE DOSE WHILST UNWELL, 2.5 MG DAILY
  21. BECLOMETHASONE DIPROPIONATE\FORMOTEROL FUMARATE\GLYCOPYRROLATE [Concomitant]
     Active Substance: BECLOMETHASONE DIPROPIONATE\FORMOTEROL FUMARATE\GLYCOPYRROLATE
     Dosage: 172 MICROGRAMS / DOSE / 5 MICROGRAMS / DOSE / 9 MICROGRAMS / DOSE?INHALER TWO PUFFS TO BE INHALED...
     Route: 055
  22. NOVORAPID [Concomitant]
     Active Substance: INSULIN ASPART
     Dosage: 100 UNITS / ML SOLUTION FOR INJECTION 3 ML PRE - FILLED PENS
  23. LANTUS [Concomitant]
     Active Substance: INSULIN GLARGINE
     Dosage: 100 UNITS / ML SOLUTION FOR INJECTION 3 ML PRE - FILLED?SOLOSTAR PENS FOR SUBCUTANEOUS INJECTION,...
     Route: 058
  24. CARBOCYSTEINE [Concomitant]
     Active Substance: CARBOCYSTEINE
  25. MORPHINE [Concomitant]
     Active Substance: MORPHINE
     Dosage: TIME INTERVAL: 4 AS NECESSARY: 10 MG / 5 ML UPTO QDS PRN
  26. BISACODYL [Concomitant]
     Active Substance: BISACODYL
     Dosage: AT NIGHT,
     Route: 048

REACTIONS (1)
  - Acute kidney injury [Unknown]
